FAERS Safety Report 13372366 (Version 2)
Quarter: 2017Q3

REPORT INFORMATION
  Report Type: Spontaneous
  Country: GB (occurrence: GB)
  Receive Date: 20170327
  Receipt Date: 20170726
  Transmission Date: 20171127
  Serious: Yes (Hospitalization, Other)
  Sender: FDA-Public Use
  Company Number: GB-ACCORD-049406

PATIENT
  Age: 47 Year
  Sex: Male
  Weight: 152 kg

DRUGS (22)
  1. WARFARIN [Suspect]
     Active Substance: WARFARIN
     Indication: PRODUCT USED FOR UNKNOWN INDICATION
     Dates: start: 20170302
  2. ATORVASTATIN/ATORVASTATIN CALCIUM [Concomitant]
     Dates: start: 20160418
  3. DIHYDROCODEINE [Concomitant]
     Active Substance: DIHYDROCODEINE
     Dosage: 4-6 HRLY
     Dates: start: 20160418
  4. EMLA [Concomitant]
     Active Substance: LIDOCAINE\PRILOCAINE
     Dates: start: 20160418
  5. HYOSCINE [Concomitant]
     Active Substance: SCOPOLAMINE
     Dosage: ONE OR TWO TO BE TAKEN THREE TIMES A DAY
     Dates: start: 20160418
  6. DULOXETINE/DULOXETINE HYDROCHLORIDE [Concomitant]
     Dates: start: 20160418
  7. PARACETAMOL [Concomitant]
     Active Substance: ACETAMINOPHEN
     Dates: start: 20160418
  8. PIOGLITAZONE/PIOGLITAZONE HYDROCHLORIDE [Concomitant]
     Dates: start: 20160418
  9. SALBUTAMOL [Concomitant]
     Active Substance: ALBUTEROL
     Route: 055
     Dates: start: 20170301
  10. TRAMADOL/TRAMADOL HYDROCHLORIDE [Suspect]
     Active Substance: TRAMADOL HYDROCHLORIDE
     Indication: PRODUCT USED FOR UNKNOWN INDICATION
     Dates: start: 20170302
  11. TINZAPARIN/TINZAPARIN SODIUM [Concomitant]
     Dates: start: 20160418
  12. DIETHANOLAMINE FUSIDATE/FUSIDATE SODIUM/FUSIDIC ACID [Concomitant]
     Dosage: APPLY 3-4 TIMES A DAY TO AFFECTED AREA
     Dates: start: 20170213, end: 20170214
  13. AMOXICILLIN. [Concomitant]
     Active Substance: AMOXICILLIN
     Dates: start: 20170222, end: 20170301
  14. BECLOMETASONE [Concomitant]
     Active Substance: BECLOMETHASONE DIPROPIONATE
     Dosage: 1 -2 PUFFS TWICE A DAY
     Dates: start: 20160418
  15. CLOTRIMAZOLE. [Concomitant]
     Active Substance: CLOTRIMAZOLE
     Dosage: APPLY TO THE AFFECTED AREA 2 TO 3 TIMES A DAY FOR UP TO 7 DAYS
     Dates: start: 20170301
  16. WATER FOR INJECTION [Concomitant]
     Active Substance: WATER
     Dosage: USE AS DIRECTED
     Dates: start: 20170301, end: 20170302
  17. NYSTATIN/NYSTATIN/LIPOSOME [Concomitant]
     Dosage: USING THE ORAL DISPENSER PROVIDED, PLACE 1ML IN...
     Dates: start: 20170213, end: 20170227
  18. QUINIDINE [Concomitant]
     Active Substance: QUINIDINE
     Dosage: AT NIGHT
     Dates: start: 20160418
  19. SUDOCREM [Concomitant]
     Dosage: AS DIRECTED
     Dates: start: 20160418
  20. CETIRIZINE [Concomitant]
     Active Substance: CETIRIZINE HYDROCHLORIDE
     Dates: start: 20160418
  21. TRICLOSAN. [Concomitant]
     Active Substance: TRICLOSAN
     Dosage: USE AS DIRECTED
     Dates: start: 20170222, end: 20170223
  22. SILDENAFIL/SILDENAFIL CITRATE [Concomitant]
     Dosage: AS DIRECTED
     Dates: start: 20160418

REACTIONS (4)
  - Rash [Recovered/Resolved]
  - Malaise [Recovered/Resolved]
  - Lethargy [Recovered/Resolved]
  - Nausea [Recovered/Resolved]

NARRATIVE: CASE EVENT DATE: 20170302
